FAERS Safety Report 4875079-3 (Version None)
Quarter: 2006Q1

REPORT INFORMATION
  Report Type: 
  Country: None (occurrence: None)
  Receive Date: 20060109
  Receipt Date: 20051220
  Transmission Date: 20060701
  Serious: Yes (Other)
  Sender: FDA-Public Use
  Company Number: US-GLAXOSMITHKLINE-A0586346A

PATIENT
  Age: 60 Year
  Weight: 72.7 kg

DRUGS (4)
  1. ZOVIRAX [Suspect]
     Indication: HERPES SIMPLEX
     Dosage: 800MG FIVE TIMES PER DAY
     Route: 048
     Dates: start: 20051203, end: 20051205
  2. HYDROXYUREA [Concomitant]
     Indication: CHEMOTHERAPY
     Dosage: 500MG TWICE PER DAY
     Dates: start: 20051130, end: 20051215
  3. NEURONTIN [Concomitant]
     Dates: start: 20000101
  4. TEGRETOL [Concomitant]
     Dosage: 300MG THREE TIMES PER DAY
     Dates: start: 20000101

REACTIONS (6)
  - ABDOMINAL PAIN [None]
  - CHILLS [None]
  - DEHYDRATION [None]
  - DIARRHOEA [None]
  - MUSCLE SPASMS [None]
  - VOMITING [None]
